FAERS Safety Report 6283708-5 (Version None)
Quarter: 2009Q3

REPORT INFORMATION
  Report Type: 
  Country: None (occurrence: None)
  Receive Date: 20090724
  Receipt Date: 20090529
  Transmission Date: 20100115
  Serious: No
  Sender: FDA-Public Use
  Company Number: US-ALEXION-A200900433

PATIENT
  Sex: Male

DRUGS (16)
  1. SOLIRIS [Suspect]
     Dosage: QW
     Route: 042
     Dates: start: 20071201
  2. SOLIRIS [Suspect]
     Dosage: 900 MG, Q2W
     Route: 042
  3. FLOMAX [Concomitant]
     Dosage: UNK
     Route: 048
  4. POTASSIUM CHLORIDE [Concomitant]
     Dosage: UNK
     Route: 048
  5. ATENOLOL [Concomitant]
     Dosage: UNK
     Route: 048
  6. LASIX [Concomitant]
     Dosage: UNK
     Route: 048
  7. LEVOTHYROXINE SODIUM [Concomitant]
     Dosage: UNK
     Route: 048
  8. VERAPAMIL [Concomitant]
     Dosage: UNK
     Route: 048
  9. INSULIN [Concomitant]
     Dosage: UNK
  10. PREDNISONE TAB [Concomitant]
     Dosage: UNK
     Route: 048
  11. LORTAB [Concomitant]
     Dosage: UNK
     Route: 048
  12. ASPIRIN [Concomitant]
     Dosage: UNK
     Route: 048
  13. FOLATE [Concomitant]
     Dosage: UNK
     Route: 048
  14. CHLORDIAZEPOXIDE [Concomitant]
     Dosage: UNK
     Route: 048
  15. VITAMIN B12                        /00056201/ [Concomitant]
     Dosage: UNK
     Route: 048
  16. FINASTERIDE [Concomitant]
     Dosage: UNK
     Route: 048

REACTIONS (4)
  - ASTHENIA [None]
  - BLOOD GLUCOSE FLUCTUATION [None]
  - BLOOD PRESSURE DECREASED [None]
  - HAEMOGLOBIN DECREASED [None]
